FAERS Safety Report 10655537 (Version 2)
Quarter: 2014Q4

REPORT INFORMATION
  Report Type: Spontaneous
  Country: JP (occurrence: JP)
  Receive Date: 20141216
  Receipt Date: 20141216
  Transmission Date: 20150529
  Serious: Yes (Death, Hospitalization, Disabling, Other)
  Sender: FDA-Public Use
  Company Number: JP-PFIZER INC-2014242633

PATIENT
  Age: 68 Year
  Sex: Male
  Weight: 54 kg

DRUGS (24)
  1. ALENDRONATE SODIUM. [Concomitant]
     Active Substance: ALENDRONATE SODIUM
     Dosage: 35 MG, WEEKLY (ON TUESDAY, AT GETTING UP)
     Route: 048
  2. FEBURIC [Concomitant]
     Active Substance: FEBUXOSTAT
     Dosage: 10 MG, 1X/DAY (AFTER DINNER)
     Route: 048
  3. PREDONINE [Concomitant]
     Active Substance: PREDNISOLONE\PREDNISOLONE ACETATE\PREDNISOLONE SODIUM SUCCINATE
     Dosage: 12.5 MG, DAILY
     Route: 048
     Dates: start: 20140820
  4. CARBOCISTEINE [Concomitant]
     Active Substance: CARBOCYSTEINE
     Dosage: 500 MG, 3X/DAY (AFTER BREAKFAST, AFTER LUNCH, AND AFTER DINNER)
     Route: 048
  5. FUNGUARD [Concomitant]
     Active Substance: MICAFUNGIN SODIUM
     Dosage: 100 MG, DAILY
     Route: 041
     Dates: start: 20140905, end: 20140908
  6. LANSOPRAZOLE. [Concomitant]
     Active Substance: LANSOPRAZOLE
     Dosage: 30 MG, 1X/DAY
     Route: 048
  7. KARY UNI [Concomitant]
     Active Substance: PIRENOXINE
     Dosage: UNK
     Route: 047
  8. VFEND [Suspect]
     Active Substance: VORICONAZOLE
     Dosage: 200 MG, 2X/DAY
     Route: 048
     Dates: start: 20140819, end: 20140825
  9. VFEND [Suspect]
     Active Substance: VORICONAZOLE
     Dosage: 50 MG, 2X/DAY
     Route: 048
     Dates: start: 20140902, end: 20140904
  10. ARGAMATE [Concomitant]
     Active Substance: POLYSTYRENE
     Dosage: 25 MG, 2X/DAY (AFTER BREAKFAST AND AFTER DINNER)
     Route: 048
  11. BAKTAR [Concomitant]
     Active Substance: SULFAMETHOXAZOLE\TRIMETHOPRIM
     Dosage: 1 DF, 2X/DAY (, AFTER BREAKFAST AND AFTER DINNER)
     Route: 048
  12. VFEND [Suspect]
     Active Substance: VORICONAZOLE
     Dosage: 100 MG, 2X/DAY
     Route: 048
     Dates: start: 20140901, end: 20140901
  13. ISCOTIN [Concomitant]
     Active Substance: ISONIAZID
     Dosage: 300 MG, 1X/DAY (AFTER BREAKFAST)
     Route: 048
  14. ITRACONAZOLE. [Concomitant]
     Active Substance: ITRACONAZOLE
     Indication: BRONCHOPULMONARY ASPERGILLOSIS
     Dosage: 200 MG, 1X/DAY
     Route: 048
     Dates: start: 20140919, end: 20140922
  15. ITRACONAZOLE. [Concomitant]
     Active Substance: ITRACONAZOLE
     Dosage: 100 MG, 1X/DAY
     Route: 048
     Dates: start: 20140923, end: 20141001
  16. PREDONINE [Concomitant]
     Active Substance: PREDNISOLONE\PREDNISOLONE ACETATE\PREDNISOLONE SODIUM SUCCINATE
     Dosage: 20 MG, DAILY (15 MG IN THE MORNING AND 5 MG AT NOON)
     Route: 048
  17. FUNGUARD [Concomitant]
     Active Substance: MICAFUNGIN SODIUM
     Indication: BRONCHOPULMONARY ASPERGILLOSIS
     Dosage: 150 MG, DAILY
     Route: 041
     Dates: start: 20140801, end: 20140817
  18. AMLODIPINE [Concomitant]
     Active Substance: AMLODIPINE BESYLATE
     Dosage: 5 MG, 1X/DAY (AFTER BREAKFAST)
     Route: 048
  19. PREDONINE [Concomitant]
     Active Substance: PREDNISOLONE\PREDNISOLONE ACETATE\PREDNISOLONE SODIUM SUCCINATE
     Dosage: 15 MG, DAILY
     Route: 048
     Dates: start: 20140813
  20. VFEND [Suspect]
     Active Substance: VORICONAZOLE
     Indication: BRONCHOPULMONARY ASPERGILLOSIS
     Dosage: 350 MG (200 MG + 150 MG), 2X/DAY
     Route: 048
     Dates: start: 20140818, end: 20140818
  21. FUNGUARD [Concomitant]
     Active Substance: MICAFUNGIN SODIUM
     Dosage: 100 MG, DAILY
     Route: 041
     Dates: end: 20140826
  22. ITRACONAZOLE. [Concomitant]
     Active Substance: ITRACONAZOLE
     Dosage: 50 MG, 1X/DAY
     Route: 048
     Dates: start: 20141002, end: 20141003
  23. NOVORAPID [Concomitant]
     Active Substance: INSULIN ASPART
     Dosage: 100 IU/ML, (18-6-12-0)
  24. LEVEMIR [Concomitant]
     Active Substance: INSULIN DETEMIR
     Dosage: 300 UNIT/3 ML (8-0-0-0)

REACTIONS (9)
  - Bacteraemia [Fatal]
  - Hallucination [Unknown]
  - Malaise [Unknown]
  - Hepatic function abnormal [Unknown]
  - Pneumonia bacterial [Fatal]
  - Altered state of consciousness [Unknown]
  - Drug level increased [Unknown]
  - Renal impairment [Not Recovered/Not Resolved]
  - Dizziness [Unknown]

NARRATIVE: CASE EVENT DATE: 20140822
